FAERS Safety Report 22086179 (Version 1)
Quarter: 2023Q1

REPORT INFORMATION
  Report Type: Spontaneous
  Country: SE (occurrence: SE)
  Receive Date: 20230310
  Receipt Date: 20230310
  Transmission Date: 20230418
  Serious: Yes (Hospitalization)
  Sender: FDA-Public Use
  Company Number: None

PATIENT
  Age: 41 Year
  Sex: Female

DRUGS (2)
  1. VENLAFAXINE [Suspect]
     Active Substance: VENLAFAXINE HYDROCHLORIDE
     Indication: Product used for unknown indication
     Dosage: 3G VENLAFAXINE DEPOT
     Route: 048
     Dates: start: 20200809, end: 20200809
  2. LAMICTAL [Suspect]
     Active Substance: LAMOTRIGINE
     Indication: Product used for unknown indication
     Dosage: UNCLEAR AMOUNT (DOSE: 1, UNIT: UNKNOWN)
     Route: 048
     Dates: start: 20200809, end: 20200809

REACTIONS (13)
  - Metabolic acidosis [Unknown]
  - Hypernatraemia [Unknown]
  - Respiratory acidosis [Unknown]
  - Ventricular fibrillation [Unknown]
  - Seizure [Unknown]
  - Loss of consciousness [Unknown]
  - Blood pressure decreased [Unknown]
  - Cardiac failure [Unknown]
  - Hypokalaemia [Unknown]
  - Tachycardia [Unknown]
  - Fatigue [Unknown]
  - Intentional self-injury [Unknown]
  - Intentional overdose [Unknown]

NARRATIVE: CASE EVENT DATE: 20200809
